FAERS Safety Report 16758998 (Version 1)
Quarter: 2019Q4

REPORT INFORMATION
  Report Type: Spontaneous
  Country: US (occurrence: US)
  Receive Date: 20190829
  Receipt Date: 20190829
  Transmission Date: 20200122
  Serious: Yes (Hospitalization)
  Sender: FDA-Public Use
  Company Number: None

PATIENT
  Sex: Male

DRUGS (9)
  1. MOBIC TAB 7.5 MG [Concomitant]
  2. LORTAB ELX 10-300 MG [Concomitant]
  3. ASPIRIN LOW TAB 81 MG EC [Concomitant]
  4. FOLIC ACID TAB 1 MG [Concomitant]
  5. ENBREL [Suspect]
     Active Substance: ETANERCEPT
     Indication: RHEUMATOID ARTHRITIS
     Dosage: ?          OTHER FREQUENCY:WEEKLY;?
     Route: 058
     Dates: start: 20160318
  6. SULFASALAZIN TAB 500 MG [Concomitant]
  7. VITAMIN D CAP 50000 UNITS [Concomitant]
  8. METHOTREXATE TAB 2.5 MG [Concomitant]
  9. CYCLOBENZAPRINE TAB 7.5 MG [Concomitant]

REACTIONS (2)
  - Grip strength decreased [None]
  - Therapy cessation [None]
